FAERS Safety Report 16845694 (Version 1)
Quarter: 2019Q3

REPORT INFORMATION
  Report Type: Spontaneous
  Country: US (occurrence: US)
  Receive Date: 20190924
  Receipt Date: 20190924
  Transmission Date: 20191005
  Serious: No
  Sender: FDA-Public Use
  Company Number: US-CHIESI USA, INC.-US-2019CHI000165

PATIENT

DRUGS (1)
  1. CLEVIPREX [Suspect]
     Active Substance: CLEVIDIPINE
     Indication: HYPERTENSION
     Dosage: UNK
     Route: 065
     Dates: start: 20190404

REACTIONS (4)
  - Withdrawal hypertension [Unknown]
  - Tachyphylaxis [Unknown]
  - Product complaint [Not Recovered/Not Resolved]
  - Drug ineffective [Unknown]

NARRATIVE: CASE EVENT DATE: 20190404
